FAERS Safety Report 8433724-X (Version None)
Quarter: 2012Q2

REPORT INFORMATION
  Report Type: 
  Country: None (occurrence: None)
  Receive Date: 20120613
  Receipt Date: 20120606
  Transmission Date: 20120825
  Serious: Yes (Hospitalization)
  Sender: FDA-Public Use
  Company Number: US-INCYTE CORPORATION-2012IN000989

PATIENT
  Sex: Male

DRUGS (8)
  1. IRON [Concomitant]
     Indication: SUPPLEMENTATION THERAPY
  2. ATIVAN [Concomitant]
  3. JAKAFI [Suspect]
     Indication: MYELOFIBROSIS
     Dosage: 15 MG, BID
     Route: 048
  4. FLOMAX [Concomitant]
  5. COLACE [Concomitant]
  6. ACETAMINOPHEN [Concomitant]
  7. PROSCAR [Concomitant]
  8. LOPRESSOR [Concomitant]

REACTIONS (1)
  - NEPHROLITHIASIS [None]
